FAERS Safety Report 5945784-6 (Version None)
Quarter: 2008Q4

REPORT INFORMATION
  Report Type: 
  Country: None (occurrence: None)
  Receive Date: 20081106
  Receipt Date: 20081024
  Transmission Date: 20090506
  Serious: Yes (Hospitalization)
  Sender: FDA-Public Use
  Company Number: 230067K08USA

PATIENT
  Age: 46 Year
  Sex: Female
  Weight: 84 kg

DRUGS (7)
  1. REBIF [Suspect]
     Indication: MULTIPLE SCLEROSIS
     Dosage: 44 MCG, 3 IN 1 WEEKS, SUBCUTANEOUS; 22 MCG, 3 IN 1 WEEKS,
     Route: 058
     Dates: start: 20070920
  2. PREVACID [Concomitant]
  3. ASPIRIN [Concomitant]
  4. PLAVIX [Concomitant]
  5. PROPRANOLOL/HCTZ (INDERIDE) [Concomitant]
  6. PRAVASTATIN [Concomitant]
  7. MIRALAX [Concomitant]

REACTIONS (4)
  - CHEST PAIN [None]
  - DIZZINESS [None]
  - GASTRITIS [None]
  - HYPERHIDROSIS [None]
